FAERS Safety Report 5822738-1 (Version None)
Quarter: 2008Q3

REPORT INFORMATION
  Report Type: 
  Country: None (occurrence: None)
  Receive Date: 20080722
  Receipt Date: 20080715
  Transmission Date: 20090109
  Serious: Yes (Other)
  Sender: FDA-Public Use
  Company Number: 2008018636

PATIENT
  Sex: 0

DRUGS (1)
  1. MINOXIDIL [Suspect]
     Indication: DRUG USE FOR UNKNOWN INDICATION
     Dosage: TOPICAL
     Route: 061
     Dates: start: 20080601

REACTIONS (2)
  - BLINDNESS [None]
  - EYE DISORDER [None]
